FAERS Safety Report 8097678 (Version 8)
Quarter: 2013Q3

REPORT INFORMATION
  Report Type: Spontaneous
  Country: IE (occurrence: IE)
  Receive Date: 20110819
  Receipt Date: 20130905
  Transmission Date: 20140515
  Serious: Yes (Life-Threatening, Hospitalization, Disabling, Other)
  Sender: FDA-Public Use
  Company Number: PHFR2011IE04745

PATIENT
  Age: 38 Year
  Sex: Female

DRUGS (28)
  1. CLOZARIL [Suspect]
     Indication: BIPOLAR DISORDER
     Dosage: 625 MG, DAILY
     Route: 048
     Dates: start: 20020331
  2. CLOZARIL [Suspect]
     Dosage: 700 MG, UNK
     Route: 048
     Dates: start: 2006
  3. CLOZARIL [Suspect]
     Dosage: 800 MG, ONCE DAILY
     Route: 048
  4. CLOZARIL [Suspect]
     Dosage: 200 MG, (100 MG 2 AT MORNING)
     Route: 048
     Dates: start: 20120913
  5. CLOZARIL [Suspect]
     Dosage: 100 MG, (7 NOCTE)
     Dates: start: 20130328
  6. CLOZARIL [Suspect]
     Dosage: 600 MG, UNK
  7. LITHIUM [Suspect]
     Dosage: 800 MG, UNK
     Dates: start: 1999
  8. EPILIM CHRONO [Concomitant]
     Indication: BIPOLAR DISORDER
     Dosage: 1200 MG, UNK
     Route: 048
     Dates: start: 2002
  9. EPILIM CHRONO [Concomitant]
     Dosage: 300 UNK, 2 MANE
     Dates: start: 20121114
  10. EPILIM CHRONO [Concomitant]
     Dosage: 300 UNK, 2 NOCTE
     Dates: start: 20130130
  11. PRIADEL [Concomitant]
     Indication: BIPOLAR DISORDER
     Dosage: 400 MG, PER DAY
     Route: 048
     Dates: start: 2002
  12. PRIADEL [Concomitant]
     Dosage: 520 MG/ML, 6 ML NOCTE
     Dates: start: 20130412
  13. ANXICALM [Concomitant]
     Dosage: 15 MG/ DAY
     Route: 048
  14. ANXICALM [Concomitant]
     Dosage: UNK
     Route: 062
  15. ELTROXIN [Concomitant]
     Indication: HYPOTHYROIDISM
     Dosage: 50 UG, 1 MANE
     Route: 048
     Dates: start: 20110223
  16. DEPO PROVERA [Concomitant]
     Indication: CONTRACEPTION
     Dosage: 150 MG/ML, EVERY 84 DAYS
     Route: 030
     Dates: start: 20110223
  17. AMILORIDE [Concomitant]
     Indication: DIABETES INSIPIDUS
     Dosage: 5 MG, DAILY
     Route: 048
     Dates: start: 20111219
  18. DIFENE [Concomitant]
     Dosage: 75 MG, 1 NOCTE
     Dates: start: 20110706
  19. GALFER [Concomitant]
     Dosage: UNK ONCE DAILY X 3/12
  20. OLANZAPINE [Concomitant]
     Dosage: 10 MG, 1 NOCTE
     Dates: start: 20130328
  21. OLANZAPINE [Concomitant]
     Dosage: 2.5 MG, 1 AT 8 AM AND 2 PM
     Dates: start: 20130328
  22. RIVOTRIL [Concomitant]
     Dosage: 0.5 MG, TID
     Dates: start: 20111214
  23. RIVOTRIL [Concomitant]
     Dosage: 0.5 MG, ( 1 FOR AGITATION OR SLEEP CA  BE REPEATED X 1 PER 12 HRS)
     Route: 048
     Dates: start: 20130131
  24. STILNOCT [Concomitant]
     Dosage: 10 MG, 1 AT 10 PM
     Dates: start: 20130306
  25. STILNOCT [Concomitant]
     Dosage: 10 MG, PRN(IF NOT RESPONDING TO REGULAR STILNOCT)
     Route: 048
     Dates: start: 20130314
  26. MOVICOL [Concomitant]
     Dosage: 1 DF, PRN
     Route: 048
     Dates: start: 20110822
  27. PARACETAMOL [Concomitant]
     Dosage: 2 DF, QD
     Route: 048
  28. PONSTAN FORTE [Concomitant]
     Dosage: 500 MG, TDS PRN
     Route: 048
     Dates: start: 20090331

REACTIONS (11)
  - Diabetes insipidus [Recovered/Resolved]
  - Dysphagia [Recovering/Resolving]
  - Respiratory tract infection [Recovered/Resolved]
  - Pneumonia aspiration [Recovered/Resolved]
  - Mental disorder [Recovering/Resolving]
  - Impulsive behaviour [Recovered/Resolved]
  - Psychomotor hyperactivity [Recovering/Resolving]
  - Hypertension [Recovered/Resolved]
  - Dysarthria [Recovered/Resolved]
  - Antipsychotic drug level increased [Recovered/Resolved]
  - White blood cell count increased [Not Recovered/Not Resolved]
